FAERS Safety Report 4798042-X (Version None)
Quarter: 2005Q3

REPORT INFORMATION
  Report Type: 
  Country: None (occurrence: None)
  Receive Date: 20050929
  Receipt Date: 20050812
  Transmission Date: 20060218
  Serious: No
  Sender: FDA-Public Use
  Company Number: 05P-163-0308217-00

PATIENT
  Age: 63 Year
  Sex: Female

DRUGS (18)
  1. HUMIRA [Suspect]
     Indication: RHEUMATOID ARTHRITIS
     Dosage: 40 MG, 1 IN 2 WK, SUBCUTANEOUS
     Route: 058
     Dates: start: 20050801, end: 20050804
  2. SALBUTAMOL [Concomitant]
  3. AMITRIPTYLINE HCL [Concomitant]
  4. ASPIRIN [Concomitant]
  5. BENAZEPRIL HCL [Concomitant]
  6. NIFEDIPINE [Concomitant]
  7. ALENDRONATE SODIUM [Concomitant]
  8. DOXAZOSIN [Concomitant]
  9. CALCET [Concomitant]
  10. CYCLOBENZAPRINE HCL [Concomitant]
  11. PROPACET 100 [Concomitant]
  12. PRAVASTATIN SODIUM [Concomitant]
  13. PREDNISONE [Concomitant]
  14. LANSOPRAZOLE [Concomitant]
  15. RANITIDINE [Concomitant]
  16. SINGULAIR [Concomitant]
  17. EPOGEN [Concomitant]
  18. SODIUM BICARBONATE [Concomitant]

REACTIONS (1)
  - TRIGEMINAL NEURALGIA [None]
